FAERS Safety Report 12133265 (Version 2)
Quarter: 2016Q2

REPORT INFORMATION
  Report Type: Report from Study
  Country: JP (occurrence: JP)
  Receive Date: 20160301
  Receipt Date: 20160623
  Transmission Date: 20160815
  Serious: Yes (Other)
  Sender: FDA-Public Use
  Company Number: JP-OTSUKA-JP-2014-17606

PATIENT
  Age: 46 Year
  Sex: Male
  Weight: 62.8 kg

DRUGS (9)
  1. CIPROFLOXACIN. [Concomitant]
     Active Substance: CIPROFLOXACIN
     Indication: FLANK PAIN
     Dosage: 600 MG, DAILY DOSE
     Route: 048
     Dates: start: 20150310, end: 20150323
  2. TOLVAPTAN [Suspect]
     Active Substance: TOLVAPTAN
     Dosage: 15 MG, IN THE EVENING
     Route: 048
     Dates: start: 20140618
  3. TOLVAPTAN [Suspect]
     Active Substance: TOLVAPTAN
     Indication: CONGENITAL CYSTIC KIDNEY DISEASE
     Dosage: 45 MG, IN THE MORNING
     Route: 048
     Dates: start: 20140618
  4. CIPROFLOXACIN. [Concomitant]
     Active Substance: CIPROFLOXACIN
     Indication: C-REACTIVE PROTEIN INCREASED
  5. MICARDIS [Concomitant]
     Active Substance: TELMISARTAN
     Indication: PRODUCT USED FOR UNKNOWN INDICATION
     Dosage: 20 MG, DAILY DOSE
     Route: 048
     Dates: end: 20141223
  6. MICARDIS [Concomitant]
     Active Substance: TELMISARTAN
     Dosage: 30 MG, DAILY DOSE
     Route: 048
     Dates: start: 20141224
  7. COCARL [Concomitant]
     Active Substance: ACETAMINOPHEN
     Indication: C-REACTIVE PROTEIN INCREASED
  8. AMLODIN [Concomitant]
     Active Substance: AMLODIPINE BESYLATE
     Indication: PRODUCT USED FOR UNKNOWN INDICATION
     Dosage: 2.5 MG, DAILY DOSE
     Route: 048
  9. COCARL [Concomitant]
     Active Substance: ACETAMINOPHEN
     Indication: FLANK PAIN
     Dosage: 1200 MG, DAILY DOSE
     Route: 048
     Dates: start: 20150310, end: 20150323

REACTIONS (5)
  - C-reactive protein increased [Recovering/Resolving]
  - Hyperuricaemia [Recovered/Resolved]
  - C-reactive protein increased [Recovering/Resolving]
  - Flank pain [Recovering/Resolving]
  - Flank pain [Recovering/Resolving]

NARRATIVE: CASE EVENT DATE: 20140903
